FAERS Safety Report 4683156-5 (Version None)
Quarter: 2005Q2

REPORT INFORMATION
  Report Type: 
  Country: None (occurrence: None)
  Receive Date: 20050602
  Receipt Date: 20050330
  Transmission Date: 20051028
  Serious: No
  Sender: FDA-Public Use
  Company Number: USA050394544

PATIENT
  Age: 36 Year
  Sex: Male
  Weight: 80 kg

DRUGS (2)
  1. CYMBALTA [Suspect]
     Indication: DEPRESSION
     Dates: start: 20041101
  2. ZYPREXA [Concomitant]
     Indication: DEPRESSION

REACTIONS (11)
  - DYSPNOEA [None]
  - FATIGUE [None]
  - FOOD ALLERGY [None]
  - INSOMNIA [None]
  - MASS [None]
  - OEDEMA MOUTH [None]
  - PHARYNGEAL OEDEMA [None]
  - RESPIRATORY DISORDER [None]
  - SENSATION OF FOREIGN BODY [None]
  - SUICIDAL IDEATION [None]
  - SWOLLEN TONGUE [None]
